FAERS Safety Report 9377699 (Version 1)
Quarter: 2013Q3

REPORT INFORMATION
  Report Type: Spontaneous
  Country: US (occurrence: US)
  Receive Date: 20130701
  Receipt Date: 20130701
  Transmission Date: 20140515
  Serious: No
  Sender: FDA-Public Use
  Company Number: US-COVIDIEN/TYCO HEALTHCARE/MALLINCKRODT-T201301693

PATIENT
  Age: 7 Year
  Sex: Male

DRUGS (1)
  1. METHYLPHENIDATE HYDROCHLORIDE EXTENDED RELEASE TABLETS [Suspect]
     Indication: ATTENTION DEFICIT/HYPERACTIVITY DISORDER
     Dosage: 27 MG, 1 TAB, PRN W/ONCE DAILY RECOMMENDATION; WEEKENDS OPTIONAL
     Route: 048
     Dates: start: 20130304, end: 20130319

REACTIONS (5)
  - Dependent personality disorder [Unknown]
  - Fear [Unknown]
  - Dysphagia [Unknown]
  - Emotional distress [Unknown]
  - Crying [Unknown]
